FAERS Safety Report 13245492 (Version 1)
Quarter: 2017Q1

REPORT INFORMATION
  Report Type: Report from Study
  Country: US (occurrence: US)
  Receive Date: 20170217
  Receipt Date: 20170217
  Transmission Date: 20170428
  Serious: Yes (Other)
  Sender: FDA-Public Use
  Company Number: US-009507513-1702USA005074

PATIENT
  Sex: Female

DRUGS (6)
  1. ESTRACE [Concomitant]
     Active Substance: ESTRADIOL
     Dosage: 2MG, TWICE A DAY
     Route: 048
  2. FOLLISTIM [Suspect]
     Active Substance: FOLLITROPIN
     Indication: OVULATION INDUCTION
     Dosage: UNK
  3. NOVAREL [Suspect]
     Active Substance: CHORIOGONADOTROPIN ALFA
     Dosage: 10000 IU WHEN THE LEAD FOLLICLE WAS }=18 MM
  4. ALBUMIN HUMAN [Concomitant]
     Active Substance: ALBUMIN HUMAN
     Dosage: WITH 10% HUMAN SERUM ALBUMIN (HSA) FROM DAYS 1-3
  5. ENDOMETRIN [Concomitant]
     Active Substance: PROGESTERONE
     Dosage: ON DAY 3, AFTER RETRIEVAL P INCREASED TO TWICE A DAY
     Route: 067
  6. ENDOMETRIN [Concomitant]
     Active Substance: PROGESTERONE
     Dosage: ON DAY 2, ONCE PER DAY
     Route: 067

REACTIONS (1)
  - Ovarian hyperstimulation syndrome [Unknown]
